FAERS Safety Report 10975352 (Version 1)
Quarter: 2015Q1

REPORT INFORMATION
  Report Type: Spontaneous
  Country: US (occurrence: None)
  Receive Date: 20150226
  Receipt Date: 20150226
  Transmission Date: 20150721
  Serious: No
  Sender: FDA-Public Use
  Company Number: TPA2009A01553

PATIENT
  Age: 6 Decade
  Sex: Male

DRUGS (2)
  1. CELEBREX [Concomitant]
     Active Substance: CELECOXIB
  2. ULORIC [Suspect]
     Active Substance: FEBUXOSTAT
     Indication: GOUTY ARTHRITIS
     Route: 048
     Dates: start: 20090525, end: 2009

REACTIONS (2)
  - Arthralgia [None]
  - Condition aggravated [None]

NARRATIVE: CASE EVENT DATE: 20090525
